FAERS Safety Report 17728560 (Version 1)
Quarter: 2020Q2

REPORT INFORMATION
  Report Type: Spontaneous
  Country: US (occurrence: US)
  Receive Date: 20200429
  Receipt Date: 20200429
  Transmission Date: 20200714
  Serious: No
  Sender: FDA-Public Use
  Company Number: None

PATIENT
  Age: 69 Year
  Sex: Female
  Weight: 102.51 kg

DRUGS (5)
  1. TYMLOS [Suspect]
     Active Substance: ABALOPARATIDE
     Indication: OSTEOPOROSIS
  2. TYMLOS [Suspect]
     Active Substance: ABALOPARATIDE
     Indication: VITAMIN D DEFICIENCY
     Route: 058
     Dates: start: 201904
  3. TYMLOS [Suspect]
     Active Substance: ABALOPARATIDE
     Indication: GASTROOESOPHAGEAL REFLUX DISEASE
     Route: 058
     Dates: start: 201904
  4. TYMLOS [Suspect]
     Active Substance: ABALOPARATIDE
     Indication: GASTROOESOPHAGEAL REFLUX DISEASE
  5. TYMLOS [Suspect]
     Active Substance: ABALOPARATIDE
     Indication: OSTEOPOROSIS
     Route: 058
     Dates: start: 201904

REACTIONS (2)
  - Fall [None]
  - Hip fracture [None]
